FAERS Safety Report 8232023-9 (Version None)
Quarter: 2012Q1

REPORT INFORMATION
  Report Type: 
  Country: None (occurrence: None)
  Receive Date: 20120323
  Receipt Date: 20120313
  Transmission Date: 20120608
  Serious: Yes (Other)
  Sender: FDA-Public Use
  Company Number: US-SANOFI-AVENTIS-2012SA013535

PATIENT
  Age: 69 Year
  Sex: Female
  Weight: 82 kg

DRUGS (4)
  1. INSULIN [Concomitant]
  2. WARFARIN SODIUM [Concomitant]
  3. DIGOXIN [Suspect]
     Route: 065
  4. MULTAQ [Suspect]
     Indication: ATRIAL FIBRILLATION
     Route: 048
     Dates: start: 20111211, end: 20120305

REACTIONS (4)
  - INSOMNIA [None]
  - WEIGHT DECREASED [None]
  - ATRIAL FLUTTER [None]
  - DYSPNOEA [None]
